FAERS Safety Report 19672462 (Version 3)
Quarter: 2021Q4

REPORT INFORMATION
  Report Type: Spontaneous
  Country: JP (occurrence: JP)
  Receive Date: 20210808
  Receipt Date: 20211229
  Transmission Date: 20220303
  Serious: Yes (Other)
  Sender: FDA-Public Use
  Company Number: JP-BEH-2021133980

PATIENT
  Age: 4 Year
  Sex: Male
  Weight: 17.3 kg

DRUGS (3)
  1. HIZENTRA [Suspect]
     Active Substance: HUMAN IMMUNOGLOBULIN G
     Indication: Hypogammaglobulinaemia
     Dosage: 1 VIAL EVERY 7-10 DAYS
     Route: 058
     Dates: start: 20190508
  2. HIZENTRA [Suspect]
     Active Substance: HUMAN IMMUNOGLOBULIN G
     Dosage: 10 MILLILITER, TOT WITH SC INFUSION RATE 10ML/H
     Route: 058
     Dates: start: 20210129, end: 20210129
  3. TRANEXAMIC ACID [Concomitant]
     Active Substance: TRANEXAMIC ACID
     Indication: Antiinflammatory therapy

REACTIONS (5)
  - Meningitis aseptic [Recovering/Resolving]
  - Asthenia [Recovering/Resolving]
  - Headache [Recovering/Resolving]
  - CSF cell count increased [Recovering/Resolving]
  - CSF protein increased [Recovering/Resolving]

NARRATIVE: CASE EVENT DATE: 20210204
